FAERS Safety Report 8240081-0 (Version None)
Quarter: 2012Q1

REPORT INFORMATION
  Report Type: 
  Country: None (occurrence: None)
  Receive Date: 20120328
  Receipt Date: 20120323
  Transmission Date: 20120608
  Serious: Yes (Other)
  Sender: FDA-Public Use
  Company Number: BE-JNJFOC-20120312951

PATIENT
  Sex: Male

DRUGS (1)
  1. LISTERINE [Suspect]
     Indication: GINGIVITIS
     Route: 048

REACTIONS (1)
  - GINGIVAL EROSION [None]
